FAERS Safety Report 5261369-1 (Version None)
Quarter: 2007Q1

REPORT INFORMATION
  Report Type: 
  Country: None (occurrence: None)
  Receive Date: 20070307
  Receipt Date: 20070227
  Transmission Date: 20070707
  Serious: Yes (Hospitalization)
  Sender: FDA-Public Use
  Company Number: 163-21880-07021302

PATIENT
  Age: 49 Year
  Sex: Female

DRUGS (2)
  1. REVLIMID [Suspect]
     Indication: MULTIPLE MYELOMA
     Dosage: 25 MG, DAILY, ORAL 5 MG, DAILY, ORAL
     Route: 048
     Dates: start: 20070206, end: 20070218
  2. REVLIMID [Suspect]
     Indication: MULTIPLE MYELOMA
     Dosage: 25 MG, DAILY, ORAL 5 MG, DAILY, ORAL
     Route: 048
     Dates: start: 20070201

REACTIONS (5)
  - DIZZINESS [None]
  - FATIGUE [None]
  - LIP SWELLING [None]
  - RASH GENERALISED [None]
  - STOMATITIS [None]
